FAERS Safety Report 5931838-7 (Version None)
Quarter: 2008Q4

REPORT INFORMATION
  Report Type: 
  Country: None (occurrence: None)
  Receive Date: 20081027
  Receipt Date: 20081015
  Transmission Date: 20090506
  Serious: Yes (Other)
  Sender: FDA-Public Use
  Company Number: US-PFIZER INC-2008061298

PATIENT
  Sex: Female

DRUGS (6)
  1. ZYVOX [Suspect]
     Indication: SKIN INFECTION
     Dates: start: 20080501, end: 20080602
  2. ULTRAM [Concomitant]
  3. NEXIUM [Concomitant]
  4. METHOTREXATE [Concomitant]
  5. ENALAPRIL MALEATE [Concomitant]
  6. ETANERCEPT [Concomitant]

REACTIONS (1)
  - WHITE BLOOD CELL COUNT DECREASED [None]
